FAERS Safety Report 6014828-8 (Version None)
Quarter: 2008Q4

REPORT INFORMATION
  Report Type: 
  Country: None (occurrence: None)
  Receive Date: 20081219
  Receipt Date: 20080728
  Transmission Date: 20090506
  Serious: No
  Sender: FDA-Public Use
  Company Number: A0741002A

PATIENT
  Sex: Male

DRUGS (2)
  1. AVODART [Suspect]
     Dosage: .5MG AT NIGHT
     Route: 048
  2. FLOMAX [Suspect]
     Dosage: .4MG AT NIGHT
     Route: 048

REACTIONS (8)
  - BREAST ENLARGEMENT [None]
  - BREAST TENDERNESS [None]
  - DIZZINESS [None]
  - DRY EYE [None]
  - LIBIDO DECREASED [None]
  - NASAL DRYNESS [None]
  - PRURITUS [None]
  - SEMEN VOLUME DECREASED [None]
